FAERS Safety Report 7746593-8 (Version None)
Quarter: 2011Q3

REPORT INFORMATION
  Report Type: 
  Country: None (occurrence: None)
  Receive Date: 20110913
  Receipt Date: 20110902
  Transmission Date: 20111222
  Serious: Yes (Other)
  Sender: FDA-Public Use
  Company Number: US-BAYER-2011-052128

PATIENT
  Age: 39 Year
  Sex: Female
  Weight: 68.481 kg

DRUGS (1)
  1. MIRENA [Suspect]
     Indication: CONTRACEPTION
     Dosage: UNK
     Route: 015
     Dates: start: 20110207, end: 20110209

REACTIONS (6)
  - DISCOMFORT [None]
  - PELVIC PAIN [None]
  - PROCEDURAL PAIN [None]
  - PROCTALGIA [None]
  - DEVICE DIFFICULT TO USE [None]
  - DEVICE DISLOCATION [None]
